FAERS Safety Report 17496576 (Version 1)
Quarter: 2020Q1

REPORT INFORMATION
  Report Type: Spontaneous
  Country: US (occurrence: US)
  Receive Date: 20200304
  Receipt Date: 20200304
  Transmission Date: 20200409
  Serious: No
  Sender: FDA-Public Use
  Company Number: US-SA-2020SA056430

PATIENT
  Age: 77 Year
  Sex: Female

DRUGS (2)
  1. TOUJEO [Suspect]
     Active Substance: INSULIN GLARGINE
     Indication: HAEMOGLOBIN INCREASED
     Dosage: INSTRUCTED TO GO UP IN INCREMENTS OF 5 TO GET TO 40 UNITS DAILY
     Route: 065
  2. TOUJEO [Suspect]
     Active Substance: INSULIN GLARGINE
     Indication: TYPE 2 DIABETES MELLITUS
     Dosage: INSTRUCTED TO GO UP IN INCREMENTS OF 5 TO GET TO 40 UNITS DAILY
     Route: 065

REACTIONS (1)
  - Product storage error [Unknown]
